FAERS Safety Report 8067320-3 (Version None)
Quarter: 2012Q1

REPORT INFORMATION
  Report Type: 
  Country: None (occurrence: None)
  Receive Date: 20120124
  Receipt Date: 20120116
  Transmission Date: 20120608
  Serious: Yes (Hospitalization)
  Sender: FDA-Public Use
  Company Number: DE-GLAXOSMITHKLINE-B0762084B

PATIENT
  Sex: Female
  Weight: 55 kg

DRUGS (4)
  1. PACLITAXEL [Suspect]
     Indication: BREAST CANCER
     Dosage: 80MGM2 WEEKLY
     Route: 042
     Dates: start: 20111013
  2. DOXORUBICIN HCL [Suspect]
     Indication: BREAST CANCER
     Dosage: 20MGM2 WEEKLY
     Route: 042
     Dates: start: 20111013
  3. LAPATINIB [Suspect]
     Indication: BREAST CANCER
     Dosage: 1000MG PER DAY
     Route: 048
     Dates: start: 20111013
  4. TRASTUZUMAB [Suspect]
     Indication: BREAST CANCER
     Dosage: 6MGK CYCLIC
     Route: 042
     Dates: start: 20111012

REACTIONS (1)
  - PYREXIA [None]
